FAERS Safety Report 9523896 (Version 2)
Quarter: 2014Q1

REPORT INFORMATION
  Report Type: Spontaneous
  Country: US (occurrence: None)
  Receive Date: 20130305
  Receipt Date: 20140306
  Transmission Date: 20141002
  Serious: Yes (Other)
  Sender: FDA-Public Use
  Company Number: 163-21880-12012575

PATIENT
  Age: 74 Year
  Sex: Male

DRUGS (1)
  1. REVLIMID (LENALIDOMIDE) (25 MILLIGRAM, CAPSULES) [Suspect]
     Indication: PLASMA CELL MYELOMA
     Route: 048
     Dates: start: 2009

REACTIONS (6)
  - Thrombosis [None]
  - Memory impairment [None]
  - Contusion [None]
  - Local swelling [None]
  - Pollakiuria [None]
  - Deep vein thrombosis [None]
